FAERS Safety Report 18392722 (Version 9)
Quarter: 2022Q2

REPORT INFORMATION
  Report Type: Report from Study
  Country: FR (occurrence: FR)
  Receive Date: 20201016
  Receipt Date: 20220519
  Transmission Date: 20220721
  Serious: Yes (Other)
  Sender: FDA-Public Use
  Company Number: FR-JNJFOC-20200802177

PATIENT
  Age: 71 Year
  Sex: Female

DRUGS (8)
  1. SPRAVATO [Suspect]
     Active Substance: ESKETAMINE
     Indication: Depression
     Dates: start: 20200622, end: 20200622
  2. SPRAVATO [Suspect]
     Active Substance: ESKETAMINE
     Dates: start: 20200624, end: 20200624
  3. SPRAVATO [Suspect]
     Active Substance: ESKETAMINE
     Dates: start: 20200630, end: 20200630
  4. SPRAVATO [Suspect]
     Active Substance: ESKETAMINE
     Dosage: X 17 DOSES
     Dates: start: 20200702, end: 20201217
  5. VENLAFAXINE [Concomitant]
     Active Substance: VENLAFAXINE HYDROCHLORIDE
     Indication: Antidepressant therapy
     Dates: start: 20190720, end: 20200519
  6. VENLAFAXINE [Concomitant]
     Active Substance: VENLAFAXINE HYDROCHLORIDE
     Dates: start: 20200520
  7. LEVOTHYROXINE [Concomitant]
     Active Substance: LEVOTHYROXINE
     Indication: Thyroid hormone replacement therapy
     Dates: start: 20200520
  8. MIANSERIN HYDROCHLORIDE [Concomitant]
     Active Substance: MIANSERIN HYDROCHLORIDE
     Indication: Antidepressant therapy
     Dates: start: 20200805

REACTIONS (8)
  - Paraesthesia [Recovered/Resolved]
  - Oropharyngeal pain [Recovered/Resolved]
  - Sedation [Recovered/Resolved]
  - Dysgeusia [Recovered/Resolved]
  - Drug ineffective [Recovered/Resolved]
  - Vertigo [Recovered/Resolved]
  - Off label use [Unknown]
  - Product use issue [Unknown]

NARRATIVE: CASE EVENT DATE: 20200622
